FAERS Safety Report 12306361 (Version 1)
Quarter: 2016Q2

REPORT INFORMATION
  Report Type: Report from Study
  Country: HU (occurrence: HU)
  Receive Date: 20160426
  Receipt Date: 20160426
  Transmission Date: 20160815
  Serious: Yes (Other)
  Sender: FDA-Public Use
  Company Number: HU-ABBVIE-16P-076-1611631-00

PATIENT
  Age: 74 Year
  Sex: Male

DRUGS (4)
  1. FRAXIPARIN [Concomitant]
     Active Substance: NADROPARIN CALCIUM
     Indication: ARRHYTHMIA PROPHYLAXIS
     Route: 058
     Dates: start: 20160405
  2. KETILEPT [Concomitant]
     Indication: HALLUCINATION
     Route: 048
     Dates: start: 201502
  3. DUODOPA [Suspect]
     Active Substance: CARBIDOPA\LEVODOPA
     Indication: PARKINSON^S DISEASE
     Dosage: MD: 10ML, CD: 4.3ML, ED: 2.0 ML
     Route: 050
     Dates: start: 20150612
  4. STALEVO [Concomitant]
     Active Substance: CARBIDOPA\ENTACAPONE\LEVODOPA
     Indication: PARKINSON^S DISEASE
     Dosage: 100/25/200 MG
     Route: 048
     Dates: start: 2005

REACTIONS (6)
  - Tachyarrhythmia [Unknown]
  - Asphyxia [Recovered/Resolved]
  - Oedema peripheral [Recovering/Resolving]
  - Emphysema [Unknown]
  - Cardiac failure [Unknown]
  - Atrial fibrillation [Unknown]

NARRATIVE: CASE EVENT DATE: 20160328
